FAERS Safety Report 5818750-9 (Version None)
Quarter: 2008Q3

REPORT INFORMATION
  Report Type: 
  Country: None (occurrence: None)
  Receive Date: 20080723
  Receipt Date: 20080711
  Transmission Date: 20090109
  Serious: Yes (Death, Other)
  Sender: FDA-Public Use
  Company Number: PL-BAYER-200822424GPV

PATIENT

DRUGS (13)
  1. FLUDARABINE PHOSPHATE [Suspect]
     Indication: BONE MARROW CONDITIONING REGIMEN
     Route: 042
  2. TREOSULFAN [Suspect]
     Indication: BONE MARROW CONDITIONING REGIMEN
     Route: 042
  3. THYMOGLOBULIN [Concomitant]
     Indication: STEM CELL TRANSPLANT
     Route: 065
  4. THYMOGLOBULIN [Concomitant]
     Route: 065
  5. THYMOGLOBULIN [Concomitant]
     Route: 065
  6. ACYCLOVIR [Concomitant]
     Indication: INFECTION PROPHYLAXIS
     Route: 042
  7. TRIMETHOPRIM + SULFAMETHOXAZOLE [Concomitant]
     Indication: INFECTION PROPHYLAXIS
     Route: 065
  8. CYCLOSPORINE [Concomitant]
     Indication: PROPHYLAXIS AGAINST GRAFT VERSUS HOST DISEASE
     Route: 042
  9. CYCLOSPORINE [Concomitant]
     Route: 065
  10. CYCLOSPORINE [Concomitant]
     Route: 042
  11. CYCLOSPORINE [Concomitant]
     Route: 048
  12. METHOTREXATE [Concomitant]
     Indication: PROPHYLAXIS AGAINST GRAFT VERSUS HOST DISEASE
     Route: 065
  13. METHOTREXATE [Concomitant]
     Route: 065

REACTIONS (23)
  - ACUTE GRAFT VERSUS HOST DISEASE [None]
  - ALANINE AMINOTRANSFERASE ABNORMAL [None]
  - ASPARTATE AMINOTRANSFERASE ABNORMAL [None]
  - BLOOD BILIRUBIN ABNORMAL [None]
  - CARDIAC ARREST [None]
  - CENTRAL NERVOUS SYSTEM INFECTION [None]
  - CHRONIC GRAFT VERSUS HOST DISEASE [None]
  - CYSTITIS BACTERIAL [None]
  - CYTOMEGALOVIRUS INFECTION [None]
  - EPSTEIN-BARR VIRUS INFECTION [None]
  - FEBRILE NEUTROPENIA [None]
  - FUNGAL INFECTION [None]
  - GAMMA-GLUTAMYLTRANSFERASE INCREASED [None]
  - HYPERTENSION [None]
  - LYMPHOPROLIFERATIVE DISORDER [None]
  - NAUSEA [None]
  - PANCYTOPENIA [None]
  - PERIPHERAL MOTOR NEUROPATHY [None]
  - PHARYNGITIS BACTERIAL [None]
  - PNEUMOCYSTIS JIROVECI PNEUMONIA [None]
  - POLYNEUROPATHY [None]
  - PYREXIA [None]
  - VOMITING [None]
